FAERS Safety Report 8543043-9 (Version None)
Quarter: 2012Q3

REPORT INFORMATION
  Report Type: 
  Country: None (occurrence: None)
  Receive Date: 20120727
  Receipt Date: 20120719
  Transmission Date: 20120928
  Serious: Yes (Other)
  Sender: FDA-Public Use
  Company Number: GB-JNJFOC-20090607953

PATIENT
  Age: 71 Year
  Sex: Female
  Weight: 81 kg

DRUGS (7)
  1. FOLIC ACID [Concomitant]
  2. PREMPAK C [Concomitant]
  3. RHEUMOX [Concomitant]
  4. REMICADE [Suspect]
     Indication: RHEUMATOID ARTHRITIS
     Route: 042
     Dates: start: 20021113, end: 20090304
  5. METHOTREXATE [Concomitant]
     Indication: RHEUMATOID ARTHRITIS
  6. AXID [Concomitant]
  7. ACETAMINOPHEN WITH PROPOXYPHENE HCL TAB [Concomitant]

REACTIONS (1)
  - SKIN CANCER [None]
